FAERS Safety Report 8514503-1 (Version None)
Quarter: 2012Q3

REPORT INFORMATION
  Report Type: 
  Country: None (occurrence: None)
  Receive Date: 20120717
  Receipt Date: 20120712
  Transmission Date: 20120928
  Serious: No
  Sender: FDA-Public Use
  Company Number: VE-PFIZER INC-2012158326

PATIENT
  Age: 58 Year
  Sex: Female

DRUGS (1)
  1. LYRICA [Suspect]
     Dosage: 75 MG, UNK
     Route: 048
     Dates: start: 20120501

REACTIONS (1)
  - NO ADVERSE EVENT [None]
